FAERS Safety Report 21242811 (Version 3)
Quarter: 2022Q3

REPORT INFORMATION
  Report Type: Report from Study
  Country: BE (occurrence: None)
  Receive Date: 20220823
  Receipt Date: 20220914
  Transmission Date: 20221027
  Serious: Yes (Hospitalization)
  Sender: FDA-Public Use
  Company Number: BE-ROCHE-3152188

PATIENT
  Age: 60 Year
  Sex: Female
  Weight: 51.2 kg

DRUGS (24)
  1. ATEZOLIZUMAB [Suspect]
     Active Substance: ATEZOLIZUMAB
     Indication: HER2 positive breast cancer
     Dosage: LAST DOSE BEFORE SAE 13/07/2022 (1200 MG)
     Route: 042
     Dates: start: 20220104, end: 20220824
  2. ADO-TRASTUZUMAB EMTANSINE [Concomitant]
     Active Substance: ADO-TRASTUZUMAB EMTANSINE
     Indication: HER2 positive breast cancer
     Dosage: LAST DOSE BEFORE SAE 13/07/2022 (205 MG)
     Route: 042
     Dates: start: 20220602
  3. PHESGO [Concomitant]
     Active Substance: HYALURONIDASE-ZZXF\PERTUZUMAB\TRASTUZUMAB
     Indication: HER2 positive breast cancer
     Dosage: LAST DOSE BEFORE SAE 19/04/2022
     Route: 058
     Dates: start: 20220308, end: 20220419
  4. PACLITAXEL [Concomitant]
     Active Substance: PACLITAXEL
     Dosage: LAST DOSE BEFORE SAE 03/05/2022
     Route: 042
     Dates: start: 20220308, end: 20220503
  5. CARBOPLATIN [Concomitant]
     Active Substance: CARBOPLATIN
     Dosage: LAST DOSE BEFORE SAE 03/05/2022
     Route: 042
     Dates: start: 20220308, end: 20220503
  6. EPIRUBICIN [Concomitant]
     Active Substance: EPIRUBICIN
     Dosage: LAST DOSE BEFORE SAE 15/02/2022
     Route: 042
     Dates: start: 20220104, end: 20220215
  7. CYCLOPHOSPHAMIDE [Concomitant]
     Active Substance: CYCLOPHOSPHAMIDE
     Dosage: LAST DOSE BEFORE SAE 15/02/2022
     Route: 042
     Dates: start: 20220104, end: 20220215
  8. ALIZAPRIDE [Concomitant]
     Active Substance: ALIZAPRIDE
     Dates: start: 20220728, end: 20220801
  9. ALIZAPRIDE [Concomitant]
     Active Substance: ALIZAPRIDE
     Dates: start: 20220801, end: 20220805
  10. ALPRAZOLAM [Concomitant]
     Active Substance: ALPRAZOLAM
     Dates: start: 20220728
  11. LORAZEPAM [Concomitant]
     Active Substance: LORAZEPAM
     Dates: start: 20220728
  12. PANTOPRAZOLE SODIUM [Concomitant]
     Active Substance: PANTOPRAZOLE SODIUM
     Dates: start: 20220730, end: 20220730
  13. PANTOPRAZOLE SODIUM [Concomitant]
     Active Substance: PANTOPRAZOLE SODIUM
     Dates: start: 20220801, end: 20220807
  14. ACETAMINOPHEN [Concomitant]
     Active Substance: ACETAMINOPHEN
     Dates: start: 20220731, end: 20220810
  15. OLANZAPINE [Concomitant]
     Active Substance: OLANZAPINE
     Dates: start: 20220731, end: 20220731
  16. OCTREOTIDE [Concomitant]
     Active Substance: OCTREOTIDE
     Dates: start: 20220805, end: 20220811
  17. IMODIUM [Concomitant]
     Active Substance: LOPERAMIDE HYDROCHLORIDE
     Dates: start: 20220802, end: 20220813
  18. RIOPAN (BELGIUM) [Concomitant]
     Dates: start: 20220806, end: 20220806
  19. PRIMPERAN [Concomitant]
     Active Substance: METOCLOPRAMIDE HYDROCHLORIDE
     Dates: start: 20220807, end: 20220819
  20. SOLU-MEDROL [Concomitant]
     Active Substance: METHYLPREDNISOLONE SODIUM SUCCINATE
     Dates: start: 20220807, end: 20220817
  21. SOLU-MEDROL [Concomitant]
     Active Substance: METHYLPREDNISOLONE SODIUM SUCCINATE
     Route: 048
     Dates: start: 20220818, end: 20220824
  22. SOLU-MEDROL [Concomitant]
     Active Substance: METHYLPREDNISOLONE SODIUM SUCCINATE
     Route: 048
     Dates: start: 20220825, end: 20220901
  23. SOLU-MEDROL [Concomitant]
     Active Substance: METHYLPREDNISOLONE SODIUM SUCCINATE
     Route: 048
     Dates: start: 20220902
  24. TRAMADOL HYDROCHLORIDE [Concomitant]
     Active Substance: TRAMADOL HYDROCHLORIDE
     Dates: start: 20220809, end: 20220809

REACTIONS (1)
  - Enterocolitis [Recovered/Resolved]

NARRATIVE: CASE EVENT DATE: 20220728
